FAERS Safety Report 8602722-5 (Version None)
Quarter: 2012Q3

REPORT INFORMATION
  Report Type: 
  Country: None (occurrence: None)
  Receive Date: 20120817
  Receipt Date: 20120803
  Transmission Date: 20120928
  Serious: Yes (Hospitalization, Other)
  Sender: FDA-Public Use
  Company Number: GB-WATSON-2012-13243

PATIENT
  Age: 46 Year
  Sex: Female

DRUGS (2)
  1. CLOZARIL [Suspect]
     Indication: SCHIZOPHRENIA
     Dosage: 40 DF, (MIXED TABLET) WHICH INCLUDED CLOZARIL
     Route: 048
     Dates: start: 20100428, end: 20120628
  2. SIMVASTATIN [Suspect]
     Indication: PRODUCT USED FOR UNKNOWN INDICATION
     Dosage: 40 MIXED TABLETS
     Route: 048

REACTIONS (6)
  - NEUTROPHIL COUNT INCREASED [None]
  - OVERDOSE [None]
  - PNEUMONIA [None]
  - WHITE BLOOD CELL COUNT INCREASED [None]
  - BLOOD CREATINE PHOSPHOKINASE INCREASED [None]
  - BLOOD UREA DECREASED [None]
